FAERS Safety Report 24831498 (Version 1)
Quarter: 2025Q1

REPORT INFORMATION
  Report Type: Spontaneous
  Country: US (occurrence: US)
  Receive Date: 20250110
  Receipt Date: 20250110
  Transmission Date: 20250409
  Serious: No
  Sender: SANOFI AVENTIS
  Company Number: US-SA-2025SA007027

PATIENT
  Age: 42 Year
  Sex: Female

DRUGS (1)
  1. DUPIXENT [Suspect]
     Active Substance: DUPILUMAB
     Indication: Dermatitis atopic
     Dosage: 300 MG, QOW
     Route: 058

REACTIONS (11)
  - Bacterial infection [Unknown]
  - Oral candidiasis [Unknown]
  - Tongue coated [Unknown]
  - Glossitis [Unknown]
  - Tongue erythema [Unknown]
  - Swollen tongue [Unknown]
  - Glossodynia [Unknown]
  - Taste disorder [Unknown]
  - Mouth ulceration [Unknown]
  - Dysarthria [Unknown]
  - Dysphagia [Unknown]
